FAERS Safety Report 14013301 (Version 6)
Quarter: 2018Q1

REPORT INFORMATION
  Report Type: Report from Study
  Country: TW (occurrence: TW)
  Receive Date: 20170926
  Receipt Date: 20180319
  Transmission Date: 20180508
  Serious: Yes (Hospitalization, Other)
  Sender: FDA-Public Use
  Company Number: TW-UCBSA-2017017623

PATIENT
  Sex: Male
  Weight: 33 kg

DRUGS (204)
  1. LACOSAMIDE. [Suspect]
     Active Substance: LACOSAMIDE
     Dosage: 100 MG, 2X/DAY (BID)
     Dates: start: 20170403, end: 20170516
  2. TOPAMAX [Concomitant]
     Active Substance: TOPIRAMATE
     Dosage: 100 MG, 2X/DAY (BID)
     Route: 048
     Dates: start: 20170526
  3. CLAFORAN [Concomitant]
     Active Substance: CEFOTAXIME SODIUM
     Indication: PNEUMONIA
     Dosage: 1500 MG, 4X/DAY (QID)
     Route: 042
     Dates: start: 20170502, end: 20170505
  4. VANCOMYCIN HCL [Concomitant]
     Active Substance: VANCOMYCIN HYDROCHLORIDE
     Indication: ANAL ABSCESS
     Dosage: 400 MG, 3X/DAY (TID)
     Dates: start: 20170501, end: 20170503
  5. VANCOMYCIN HCL [Concomitant]
     Active Substance: VANCOMYCIN HYDROCHLORIDE
     Dosage: 400 MG, 3X/DAY (TID)
     Dates: start: 20170917, end: 20170919
  6. ACETAMINOPHEN. [Concomitant]
     Active Substance: ACETAMINOPHEN
     Indication: UPPER RESPIRATORY TRACT INFECTION
     Dosage: 250 MG, Q6HPRN
     Route: 048
     Dates: start: 20170327, end: 20170330
  7. DEXTROSE AND SODIUM CHLORIDE [Concomitant]
     Active Substance: DEXTROSE MONOHYDRATE\SODIUM CHLORIDE
     Indication: HYPERNATRAEMIA
     Dosage: 2400 ML, ONCE DAILY (QD), ROUTE CIF
     Dates: start: 20170414, end: 20170417
  8. DEXTROSE AND SODIUM CHLORIDE [Concomitant]
     Active Substance: DEXTROSE MONOHYDRATE\SODIUM CHLORIDE
     Indication: PNEUMONIA
     Dosage: 1440 ML, ONCE DAILY (QD)
     Dates: start: 20170421, end: 20170501
  9. DEXTROSE. [Concomitant]
     Active Substance: DEXTROSE
     Indication: DEHYDRATION
  10. BISACODYL. [Concomitant]
     Active Substance: BISACODYL
     Dosage: 20 MG, AS NEEDED (PRN)
     Dates: start: 20170414, end: 20170417
  11. BISACODYL. [Concomitant]
     Active Substance: BISACODYL
     Dosage: 5 MG, ONCE DAILY (QD)
     Route: 048
     Dates: start: 20170419, end: 20170421
  12. ANTIBIOTICS-RESISTANT LACTIC ACID BACTERIAE [Concomitant]
     Active Substance: UNSPECIFIED INGREDIENT
     Indication: CELLULITIS
     Dosage: 6 MG, 3X/DAY (TID)
     Route: 048
     Dates: start: 20170805, end: 20170817
  13. DIMETHICONE. [Concomitant]
     Active Substance: DIMETHICONE
     Indication: PERITONITIS
     Dosage: 40 MG, UNK
     Route: 048
     Dates: start: 20170418, end: 20170419
  14. MIDAZOLAM HCL [Concomitant]
     Active Substance: MIDAZOLAM HYDROCHLORIDE
     Dosage: 3.5 MG, UNK
     Route: 042
     Dates: start: 20170719, end: 20170719
  15. LIDOCAINE HCL [Concomitant]
     Active Substance: LIDOCAINE HYDROCHLORIDE
     Indication: LOCAL ANAESTHESIA
     Dosage: 20 ML, UNK
     Dates: start: 20170501, end: 20170502
  16. LIDOCAINE HCL [Concomitant]
     Active Substance: LIDOCAINE HYDROCHLORIDE
     Indication: POSTOPERATIVE CARE
     Dosage: 1 ML, 6X/DAY
     Dates: start: 20170517, end: 20170517
  17. ACETYLCYSTEINE. [Concomitant]
     Active Substance: ACETYLCYSTEINE
     Dosage: 300 MG, 6X/DAY
     Dates: start: 20170518, end: 20170521
  18. ACETYLCYSTEINE. [Concomitant]
     Active Substance: ACETYLCYSTEINE
     Dosage: 300 MG, 4X/DAY (QID)
     Dates: start: 20170523
  19. CHLORPHENIRAMINE MALEATE. [Concomitant]
     Active Substance: CHLORPHENIRAMINE MALEATE
     Indication: WOUND
     Dosage: UNK
     Dates: start: 20170511, end: 20170517
  20. DICLOFENAC SODIUM. [Concomitant]
     Active Substance: DICLOFENAC SODIUM
     Indication: PAIN
     Dosage: 1 DF, AS NEEDED (PRN)
     Dates: start: 20170719, end: 20170817
  21. TERBUTALINE SULFATE. [Concomitant]
     Active Substance: TERBUTALINE SULFATE
     Dosage: 5 MG, 4X/DAY (QID)
     Dates: start: 20170518, end: 20170521
  22. TRAMADOL HCL [Concomitant]
     Active Substance: TRAMADOL HYDROCHLORIDE
     Indication: POSTOPERATIVE CARE
     Dosage: 100 MG, UNK
     Dates: start: 20170518, end: 20170521
  23. CLAVULANIC ACID [Concomitant]
     Active Substance: CLAVULANIC ACID
     Indication: FURUNCLE
     Dosage: 125 MG, 2X/DAY (BID)
     Route: 048
     Dates: start: 20170405, end: 20170409
  24. SODIUM CHLORIDE. [Concomitant]
     Active Substance: SODIUM CHLORIDE
     Dosage: 500 ML, 2X/DAY (BID)
     Dates: start: 20170720, end: 20170720
  25. BETAMETHASONE/NEOMYCIN [Concomitant]
     Indication: CONJUNCTIVITIS
     Dosage: UNK, 3X/DAY (TID)
     Route: 047
     Dates: start: 20170907, end: 20170912
  26. FAMOTIDINE. [Concomitant]
     Active Substance: FAMOTIDINE
     Indication: CELLULITIS
     Dosage: 10 MG, 2X/DAY (BID)
     Route: 048
     Dates: start: 20170819, end: 20170822
  27. LEVOCETIRIZINE [Concomitant]
     Active Substance: LEVOCETIRIZINE
     Indication: APPLICATION SITE ERYTHEMA
     Dosage: 5 MG, ONCE DAILY (QD)
     Route: 048
     Dates: start: 20170731, end: 20170809
  28. TETRACYCLINE HCL [Concomitant]
     Active Substance: TETRACYCLINE HYDROCHLORIDE
     Indication: PRODUCT USED FOR UNKNOWN INDICATION
     Dosage: UNK
     Dates: start: 20170719, end: 20170810
  29. LEVETIRACETAM. [Concomitant]
     Active Substance: LEVETIRACETAM
     Dosage: 1000 MG, 2X/DAY (BID) ROUTE IF
     Dates: start: 20170720, end: 20170728
  30. ALEVIATIN [Concomitant]
     Active Substance: PHENYTOIN SODIUM
     Dosage: 100 MG, 2X/DAY (BID)
     Dates: start: 20170721, end: 20170728
  31. DEXTROSE AND SODIUM CHLORIDE [Concomitant]
     Active Substance: DEXTROSE MONOHYDRATE\SODIUM CHLORIDE
     Dosage: 1800 ML, ONCE DAILY (QD)
     Dates: start: 20170501, end: 20170501
  32. BISACODYL. [Concomitant]
     Active Substance: BISACODYL
     Dosage: 20 MG, AS NEEDED (PRN)
     Dates: start: 20170420, end: 20170517
  33. CHLORAL HYDRATE [Concomitant]
     Active Substance: CHLORAL HYDRATE
     Indication: PERITONITIS
     Dosage: 1600 MG, AS NEEDED (PRN)
     Route: 048
     Dates: start: 20170420, end: 20170428
  34. MIDAZOLAM HCL [Concomitant]
     Active Substance: MIDAZOLAM HYDROCHLORIDE
     Dosage: 3 MG, UNK
     Route: 042
     Dates: start: 20170730, end: 20170731
  35. KETAMINE HCL [Concomitant]
     Active Substance: KETAMINE HYDROCHLORIDE
     Indication: SURGERY
     Dosage: 30 MG, ONCE DAILY (QD)
     Route: 042
     Dates: start: 20170501, end: 20170501
  36. FUCIDIN [Concomitant]
     Active Substance: FUSIDIC ACID
     Indication: RASH
     Dosage: UNK, 2X/DAY (BID)
     Dates: start: 20170530
  37. METHYL SALICYLATE [Concomitant]
     Active Substance: METHYL SALICYLATE
     Indication: WOUND
     Dosage: UNK
     Dates: start: 20170511, end: 20170517
  38. CAMPHOR [Concomitant]
     Active Substance: CAMPHOR
     Indication: WOUND
     Dosage: UNK
     Dates: start: 20170511, end: 20170517
  39. METRONIDAZOLE. [Concomitant]
     Active Substance: METRONIDAZOLE
     Indication: PERITONITIS
     Dosage: 400 MG, 3X/DAY (TID)
     Dates: start: 20170516, end: 20170525
  40. ESOMEPRAZOLE [Concomitant]
     Active Substance: ESOMEPRAZOLE
     Dosage: 35 MG, ONCE DAILY (QD)
     Route: 042
     Dates: start: 20170716, end: 20170720
  41. PIPERACILLIN [Concomitant]
     Active Substance: PIPERACILLIN
     Indication: DEVICE RELATED INFECTION
     Dosage: 2600 MG, 4X/DAY (QID)
     Dates: start: 20170530, end: 20170605
  42. SODIUM CHLORIDE. [Concomitant]
     Active Substance: SODIUM CHLORIDE
     Dosage: 500 ML, UNK, IF
     Dates: start: 20170730, end: 20170730
  43. CEFIXIME. [Concomitant]
     Active Substance: CEFIXIME
     Indication: DEVICE RELATED INFECTION
     Dosage: UNK
  44. IBUPROFEN. [Concomitant]
     Active Substance: IBUPROFEN
     Indication: CELLULITIS
     Dosage: UNK
     Route: 048
     Dates: start: 20170819, end: 20170822
  45. CEFEPIME HCL [Concomitant]
     Active Substance: CEFEPIME HYDROCHLORIDE
     Indication: PNEUMONIA
     Dosage: 1750 MG, 3X/DAY (TID)
     Route: 042
     Dates: start: 20170721, end: 20170722
  46. DOPAMINE HCL [Concomitant]
     Active Substance: DOPAMINE HYDROCHLORIDE
     Indication: PNEUMONIA
     Dosage: 400 MG, ONCE DAILY (QD), ROUTE: IF
     Dates: start: 20170715, end: 20170717
  47. SUCCINYLCHOLINE CHLORIDE. [Concomitant]
     Active Substance: SUCCINYLCHOLINE CHLORIDE
     Indication: PNEUMONIA
     Dosage: 30 MG, UNK
     Route: 042
     Dates: start: 20170715, end: 20170716
  48. CHOLINE SALICYLATE [Concomitant]
     Active Substance: CHOLINE SALICYLATE
     Indication: PNEUMONIA
     Dosage: UNK, 2X/DAY (BID)
     Dates: start: 20170717, end: 20170721
  49. CEFTAZIDIME PENTAHYDRATE [Concomitant]
     Active Substance: CEFTAZIDIME
     Dosage: 2000 MG, 3X/DAY (TID)
     Route: 042
     Dates: start: 20170804, end: 20170809
  50. DIPHENHYDRAMINE HCL [Concomitant]
     Active Substance: DIPHENHYDRAMINE HYDROCHLORIDE
     Dosage: 30 MG, AS NEEDED (PRN)
     Route: 042
     Dates: start: 20170724, end: 20170809
  51. TARGOCID [Concomitant]
     Active Substance: TEICOPLANIN
     Indication: PRODUCT USED FOR UNKNOWN INDICATION
     Dosage: UNK
  52. FENOTEROL HYDROBROMIDE [Concomitant]
     Active Substance: FENOTEROL HYDROBROMIDE
     Indication: UPPER RESPIRATORY TRACT INFECTION
     Dosage: 2.5 MG, 3X/DAY (TID)
     Route: 048
     Dates: start: 20180109, end: 20180116
  53. AMBROXOL HYDROCHLORIDE [Concomitant]
     Active Substance: AMBROXOL HYDROCHLORIDE
     Indication: UPPER RESPIRATORY TRACT INFECTION
     Dosage: 30 MG, 3X/DAY (TID)
     Dates: start: 20180109, end: 20180116
  54. LACOSAMIDE. [Suspect]
     Active Substance: LACOSAMIDE
     Indication: EPILEPSY
     Dosage: 50 MG, ONCE DAILY (QD)
     Route: 048
     Dates: start: 20170313, end: 20170319
  55. LACOSAMIDE. [Suspect]
     Active Substance: LACOSAMIDE
     Dosage: 100 MG, 2X/DAY (BID)
     Dates: start: 20170526
  56. KEPPRA [Concomitant]
     Active Substance: LEVETIRACETAM
     Indication: EPILEPSY
     Dosage: 1000 MG, 2X/DAY (BID)
     Route: 048
     Dates: start: 20160119, end: 20170516
  57. CLAFORAN [Concomitant]
     Active Substance: CEFOTAXIME SODIUM
     Dosage: 1800 MG, 2X/DAY (BID)
     Dates: start: 20170715, end: 20170717
  58. VANCOMYCIN HCL [Concomitant]
     Active Substance: VANCOMYCIN HYDROCHLORIDE
     Dosage: 400 MG, 3X/DAY (TID)
     Dates: start: 20170520, end: 20170525
  59. DEXTROSE AND SODIUM CHLORIDE [Concomitant]
     Active Substance: DEXTROSE MONOHYDRATE\SODIUM CHLORIDE
     Dosage: 1800 ML, ONCE DAILY (QD)
     Dates: start: 20170716, end: 20170717
  60. DEXTROSE. [Concomitant]
     Active Substance: DEXTROSE
     Indication: HYPERNATRAEMIA
     Dosage: ROUTE IF 900 ML, ONCE DAILY (QD)
     Dates: start: 20170414, end: 20170415
  61. BISACODYL. [Concomitant]
     Active Substance: BISACODYL
     Indication: ILEUS
     Dosage: 10 MG, UNK
     Dates: start: 20170414, end: 20170414
  62. BISACODYL. [Concomitant]
     Active Substance: BISACODYL
     Indication: ILEUS
     Dosage: 10 MG, UNK
     Route: 048
     Dates: start: 20170414, end: 20170414
  63. ANTIBIOTICS-RESISTANT LACTIC ACID BACTERIAE [Concomitant]
     Active Substance: UNSPECIFIED INGREDIENT
     Indication: INFECTION
     Dosage: 6 MG, 4X/DAY (QID)
     Route: 048
     Dates: start: 20170819, end: 20170819
  64. MIDAZOLAM HCL [Concomitant]
     Active Substance: MIDAZOLAM HYDROCHLORIDE
     Indication: PNEUMONIA
     Dosage: 3 MG, AS NEEDED (PRN)
     Route: 042
     Dates: start: 20170426, end: 20170428
  65. ACETYLCYSTEINE. [Concomitant]
     Active Substance: ACETYLCYSTEINE
     Indication: PRODUCTIVE COUGH
     Dosage: 100 MG, 6X/DAY
     Dates: start: 20170517, end: 20170517
  66. LIDOCAINE HYDROCHLORIDE. [Concomitant]
     Active Substance: LIDOCAINE HYDROCHLORIDE
     Indication: POSTOPERATIVE CARE
  67. MAGNESIUM SULFATE. [Concomitant]
     Active Substance: MAGNESIUM SULFATE
     Indication: POSTOPERATIVE CARE
     Dosage: 16 MEQ, UNK
     Dates: start: 20170519, end: 20170519
  68. AMOXICILLIN. [Concomitant]
     Active Substance: AMOXICILLIN
     Indication: FURUNCLE
     Dosage: 250 MG, 2X/DAY (BID)
     Route: 048
     Dates: start: 20170405, end: 20170409
  69. FLUCONAZOLE. [Concomitant]
     Active Substance: FLUCONAZOLE
     Indication: DEVICE RELATED INFECTION
     Dosage: UNK
  70. FLUOCINONIDE. [Concomitant]
     Active Substance: FLUOCINONIDE
     Indication: DERMATITIS CONTACT
     Dosage: UNK, 2X/DAY (BID)
     Dates: start: 20170801, end: 20170810
  71. BETAMETHASONE SODIUM PHOSPHATE [Concomitant]
     Active Substance: BETAMETHASONE SODIUM PHOSPHATE
     Indication: PNEUMONIA
     Dosage: 4 MG, 4X/DAY (QID)
     Route: 042
     Dates: start: 20170730, end: 20170731
  72. SODIUM BICARBONATE. [Concomitant]
     Active Substance: SODIUM BICARBONATE
     Dosage: 66.4 MEQ, UNK
     Dates: start: 20170716, end: 20170716
  73. LEVOPHED [Concomitant]
     Active Substance: NOREPINEPHRINE BITARTRATE
     Indication: PNEUMONIA
     Dosage: 4 MG, ONCE DAILY (QD) ROUTE: CIF
     Dates: start: 20170715, end: 20170726
  74. TERBUTALINE SULFATE. [Concomitant]
     Active Substance: TERBUTALINE SULFATE
     Dosage: UNK 1 AMP Q4H
     Dates: start: 20170727, end: 20170728
  75. LINEZOLID. [Concomitant]
     Active Substance: LINEZOLID
     Indication: PRODUCT USED FOR UNKNOWN INDICATION
     Dosage: UNK
     Dates: start: 20170605, end: 20170628
  76. MEBHYDROLIN [Concomitant]
     Active Substance: MEBHYDROLIN
     Indication: UPPER RESPIRATORY TRACT INFECTION
     Dosage: 50 MG, 3X/DAY (TID)
     Route: 048
     Dates: start: 20180212, end: 20180216
  77. PHENYTOIN. [Suspect]
     Active Substance: PHENYTOIN
     Indication: EPILEPSY
     Dosage: 100 MG, 2X/DAY (BID)
     Route: 048
     Dates: start: 20160411, end: 20170516
  78. KEPPRA [Concomitant]
     Active Substance: LEVETIRACETAM
     Dosage: 1000 MG, 2X/DAY (BID)
     Route: 048
     Dates: start: 20170728
  79. ALEVIATIN [Concomitant]
     Active Substance: PHENYTOIN SODIUM
     Dosage: 100 MG, 2X/DAY (BID)
     Route: 042
     Dates: start: 20170720, end: 20170721
  80. AMPICILLIN [Concomitant]
     Active Substance: AMPICILLIN
     Indication: PERITONITIS
     Dosage: 1000 MG, 4X/DAY (QID)
     Route: 042
     Dates: start: 20170414, end: 20170427
  81. VANCOMYCIN HCL [Concomitant]
     Active Substance: VANCOMYCIN HYDROCHLORIDE
     Indication: DEVICE RELATED INFECTION
     Dosage: 650 MG, STAT
     Dates: start: 20170501, end: 20170501
  82. FENTANYL CITRATE. [Concomitant]
     Active Substance: FENTANYL CITRATE
     Dosage: 0.03 MG, Q8H PRN
     Route: 042
     Dates: start: 20170516, end: 20170517
  83. DEXTROSE AND SODIUM CHLORIDE [Concomitant]
     Active Substance: DEXTROSE MONOHYDRATE\SODIUM CHLORIDE
     Indication: HYPERNATRAEMIA
     Dosage: 500 ML, ONCE DAILY (QD)
     Dates: start: 20170414, end: 20170414
  84. DEXTROSE AND SODIUM CHLORIDE [Concomitant]
     Active Substance: DEXTROSE MONOHYDRATE\SODIUM CHLORIDE
     Indication: DEHYDRATION
     Dosage: 1680 ML, ONCE DAILY (QD)
     Dates: start: 20170516, end: 20170516
  85. DEXTROSE AND SODIUM CHLORIDE [Concomitant]
     Active Substance: DEXTROSE MONOHYDRATE\SODIUM CHLORIDE
     Dosage: 1200 ML, ONCE DAILY (QD)
     Dates: start: 20170516, end: 20170517
  86. DEXTROSE. [Concomitant]
     Active Substance: DEXTROSE
     Indication: HYPERNATRAEMIA
     Dosage: 12.5 MG, ONCE DAILY (QD), ROUTE CIF
     Dates: start: 20170413, end: 20170414
  87. METOCLOPRAMIDE HCL [Concomitant]
     Active Substance: METOCLOPRAMIDE HYDROCHLORIDE
     Indication: PERITONITIS
     Dosage: 6 MG, UNK
     Route: 042
     Dates: start: 20170414, end: 20170415
  88. ANTIBIOTICS-RESISTANT LACTIC ACID BACTERIAE [Concomitant]
     Active Substance: UNSPECIFIED INGREDIENT
     Indication: PERITONITIS
     Dosage: 6 MG, TIDPC
     Route: 048
     Dates: start: 20170418, end: 20170516
  89. ZINC OXIDE. [Concomitant]
     Active Substance: ZINC OXIDE
     Indication: PERITONITIS
     Dosage: UNK
     Dates: start: 20170422
  90. FORTUM [Concomitant]
     Active Substance: CEFTAZIDIME
     Indication: DEVICE RELATED INFECTION
     Dosage: 2000 MG, 3X/DAY (TID)
     Route: 042
     Dates: start: 20170602
  91. ZALAIN [Concomitant]
     Active Substance: SERTACONAZOLE NITRATE
     Indication: WOUND
     Dosage: UNK
     Dates: start: 20170517
  92. FUCIDIN [Concomitant]
     Active Substance: FUSIDIC ACID
     Indication: CARBUNCLE
     Dosage: UNK, 2X/DAY (BID)
     Dates: start: 20170916
  93. TERBUTALINE SULFATE. [Concomitant]
     Active Substance: TERBUTALINE SULFATE
     Indication: POSTOPERATIVE CARE
     Dosage: 5 MG, 4X/DAY (QID)
     Dates: start: 20170516, end: 20170517
  94. ESOMEPRAZOLE [Concomitant]
     Active Substance: ESOMEPRAZOLE
     Indication: PNEUMONIA
     Dosage: 20 MG, 2X/DAY (BID)
     Route: 042
     Dates: start: 20170519
  95. POTASSIUM CHLORIDE. [Concomitant]
     Active Substance: POTASSIUM CHLORIDE
     Dosage: UNK UNK, 3X/DAY (TID), 20 MEQ ONCE AND 40 MEQ TWICE
     Route: 042
     Dates: start: 20170716, end: 20170716
  96. DEXCHLORPHENIRAMINE MALEATE. [Concomitant]
     Active Substance: DEXCHLORPHENIRAMINE MALEATE
     Indication: UPPER RESPIRATORY TRACT INFECTION
     Dosage: 1.17 MG, 3X/DAY (TID)
     Route: 048
     Dates: start: 20170327, end: 20170330
  97. CHLORAMPHENICOL [Concomitant]
     Active Substance: CHLORAMPHENICOL
     Indication: CONJUNCTIVITIS
     Dosage: UNK
     Route: 047
     Dates: start: 20170907, end: 20170912
  98. COTRIMOXAZOLE [Concomitant]
     Active Substance: SULFAMETHOXAZOLE\TRIMETHOPRIM
     Indication: CARBUNCLE
     Dosage: 1 DF, 2X/DAY (BID)
     Route: 048
     Dates: start: 20170822, end: 20170829
  99. MEROPENEM TRIHYDRATE [Concomitant]
     Active Substance: MEROPENEM
     Dosage: 750 MG, 3X/DAY (TID)
     Dates: end: 20170803
  100. DIFLUCAN [Concomitant]
     Active Substance: FLUCONAZOLE
     Indication: PRODUCT USED FOR UNKNOWN INDICATION
  101. CASPOFUNGIN [Concomitant]
     Active Substance: CASPOFUNGIN
     Indication: PRODUCT USED FOR UNKNOWN INDICATION
  102. CEFSPAN [Concomitant]
     Active Substance: CEFIXIME
     Indication: PRODUCT USED FOR UNKNOWN INDICATION
     Dosage: UNK
     Dates: start: 20170628
  103. CLAFORAN [Concomitant]
     Active Substance: CEFOTAXIME SODIUM
     Dosage: 1500 MG, 4X/DAY (QID)
     Route: 042
     Dates: start: 20170516, end: 20170525
  104. VANCOMYCIN HCL [Concomitant]
     Active Substance: VANCOMYCIN HYDROCHLORIDE
     Dosage: 400 MG, 2X/DAY (BID)
     Dates: start: 20170503, end: 20170510
  105. VANCOMYCIN HCL [Concomitant]
     Active Substance: VANCOMYCIN HYDROCHLORIDE
     Dosage: 400 MG, 2X/DAY (BID)
     Dates: start: 20170516, end: 20170519
  106. DEXTROSE AND SODIUM CHLORIDE [Concomitant]
     Active Substance: DEXTROSE MONOHYDRATE\SODIUM CHLORIDE
     Dosage: 1920 ML, ONCE DAILY (QD)
     Dates: start: 20170530, end: 20170531
  107. BISACODYL. [Concomitant]
     Active Substance: BISACODYL
     Dosage: 20 MG, UNK
     Dates: start: 20170414, end: 20170415
  108. METOCLOPRAMIDE HCL [Concomitant]
     Active Substance: METOCLOPRAMIDE HYDROCHLORIDE
     Indication: PNEUMONIA
     Dosage: 5 MG, 3X/DAY (TID)
     Dates: start: 20170720, end: 20170809
  109. MIDAZOLAM HCL [Concomitant]
     Active Substance: MIDAZOLAM HYDROCHLORIDE
     Indication: PERITONITIS
     Dosage: 3 MG, AS NEEDED (PRN)
     Route: 042
     Dates: start: 20170420, end: 20170421
  110. FUROSEMIDE. [Concomitant]
     Active Substance: FUROSEMIDE
     Indication: POSTOPERATIVE CARE
     Dosage: 10 MG, UNK
     Route: 042
     Dates: start: 20170517, end: 20170517
  111. EPINEPHRINE HYDROCHLORIDE. [Concomitant]
     Active Substance: EPINEPHRINE HYDROCHLORIDE
     Dosage: 0.2 MG, 4X/DAY (QID)
     Dates: start: 20170731, end: 20170810
  112. NEOMYCIN. [Concomitant]
     Active Substance: NEOMYCIN
     Indication: FURUNCLE
     Dosage: UNK
     Dates: start: 20170405, end: 20170409
  113. SODIUM CHLORIDE. [Concomitant]
     Active Substance: SODIUM CHLORIDE
     Indication: POSTOPERATIVE CARE
     Dosage: 2.25 MG, UNK
     Dates: start: 20170516, end: 20170516
  114. SODIUM CHLORIDE. [Concomitant]
     Active Substance: SODIUM CHLORIDE
     Indication: POSTOPERATIVE CARE
     Dosage: 500 ML, UNK
     Dates: start: 20170523, end: 20170523
  115. SODIUM CHLORIDE. [Concomitant]
     Active Substance: SODIUM CHLORIDE
     Indication: CENTRAL VENOUS CATHETERISATION
     Dosage: 500 ML, ONCE DAILY (QD) ROUTE IF
     Dates: start: 20170715, end: 20170715
  116. TPN [Concomitant]
     Active Substance: AMINO ACIDS\DEXTROSE\ELECTROLYTES NOS\SOYBEAN OIL
     Indication: NUTRITIONAL SUPPLEMENTATION
  117. MIDAZOLAM HCL [Concomitant]
     Active Substance: MIDAZOLAM HYDROCHLORIDE
     Indication: PNEUMONIA
     Dosage: 15 MG, ONCE DAILY (QD) CIF: ROUTE
     Dates: start: 20170715, end: 20170718
  118. ALBUMIN [Concomitant]
     Active Substance: ALBUMIN HUMAN
     Dosage: 25 G, ONCE DAILY (QD)
     Dates: start: 20170717, end: 20170718
  119. MAGNESIUM SULPHATE [Concomitant]
     Active Substance: MAGNESIUM SULFATE
     Indication: PNEUMONIA
     Dosage: 16 MEQ, UNK ROUTE IF
     Dates: start: 20170716, end: 20170716
  120. SERTACONAZOLE NITRATE [Concomitant]
     Active Substance: SERTACONAZOLE NITRATE
     Indication: DERMATITIS DIAPER
     Dosage: UNK, 2X/DAY (BID)
     Dates: start: 20180102, end: 20180107
  121. LACOSAMIDE. [Suspect]
     Active Substance: LACOSAMIDE
     Dosage: 50 MG, 2X/DAY (BID)
     Dates: start: 20170320, end: 20170326
  122. LACOSAMIDE. [Suspect]
     Active Substance: LACOSAMIDE
     Dosage: 2X/DAY (BID) (50 MG IN MORNING AND 100 MG IN EVENING)
     Dates: start: 20170327, end: 20170402
  123. KEPPRA [Concomitant]
     Active Substance: LEVETIRACETAM
     Dosage: 1000 G, 2X/DAY (BID)
     Route: 048
     Dates: start: 20170526, end: 20170720
  124. TOPAMAX [Concomitant]
     Active Substance: TOPIRAMATE
     Indication: EPILEPSY
     Dosage: 100 MG, 2X/DAY (BID)
     Route: 048
     Dates: start: 20160413, end: 20170516
  125. ACETAMINOPHEN. [Concomitant]
     Active Substance: ACETAMINOPHEN
     Indication: PERITONITIS
     Dosage: 250 MG, Q6HPRN
     Route: 048
     Dates: start: 20170426
  126. DEXTROSE AND SODIUM CHLORIDE [Concomitant]
     Active Substance: DEXTROSE MONOHYDRATE\SODIUM CHLORIDE
     Indication: DEHYDRATION
     Dosage: 500 ML, ONCE DAILY (QD)
     Dates: start: 20170417, end: 20170418
  127. MIDAZOLAM HCL [Concomitant]
     Active Substance: MIDAZOLAM HYDROCHLORIDE
     Indication: VENTRICULO-PERITONEAL SHUNT
     Dosage: 1.5 MG, AS NEEDED (PRN)
     Route: 042
     Dates: start: 20170421, end: 20170426
  128. MIDAZOLAM HCL [Concomitant]
     Active Substance: MIDAZOLAM HYDROCHLORIDE
     Dosage: 3 MG, ONCE DAILY (QD)
     Route: 042
     Dates: start: 20170501, end: 20170501
  129. KETAMINE HCL [Concomitant]
     Active Substance: KETAMINE HYDROCHLORIDE
     Dosage: 30 MG, UNK
     Route: 042
     Dates: start: 20170516, end: 20170516
  130. ZINC OXIDE. [Concomitant]
     Active Substance: ZINC OXIDE
     Indication: WOUND
  131. METHYLPREDNISOLONE SODIUM SUCCINATE. [Concomitant]
     Active Substance: METHYLPREDNISOLONE SODIUM SUCCINATE
     Indication: POSTOPERATIVE CARE
     Dosage: 40 MG, 6X/DAY
     Dates: start: 20170517, end: 20170517
  132. FAT EMULSION NOS [Concomitant]
     Active Substance: EGG PHOSPHOLIPIDS\SAFFLOWER OIL\SOYBEAN OIL
     Indication: NUTRITIONAL SUPPLEMENTATION
     Dosage: 85 ML, ONCE DAILY (QD)
     Dates: start: 20170518, end: 20170530
  133. FAT EMULSION NOS [Concomitant]
     Active Substance: EGG PHOSPHOLIPIDS\SAFFLOWER OIL\SOYBEAN OIL
     Indication: RASH
  134. FUCIDIN [Concomitant]
     Active Substance: FUSIDIC ACID
     Indication: CELLULITIS
     Dosage: UNK, 2X/DAY (BID)
     Dates: start: 20170819, end: 20170829
  135. DICLOFENAC SODIUM. [Concomitant]
     Active Substance: DICLOFENAC SODIUM
     Indication: PYREXIA
     Dosage: 12.5 MG, 4X/DAY (QID) AS NEEDED
     Dates: start: 20170516
  136. TERBUTALINE SULFATE. [Concomitant]
     Active Substance: TERBUTALINE SULFATE
     Dosage: 5 MG, 4X/DAY (QID)
     Dates: start: 20170523
  137. EPINEPHRINE HYDROCHLORIDE. [Concomitant]
     Active Substance: EPINEPHRINE HYDROCHLORIDE
     Indication: PNEUMONIA
     Dosage: 2 MG, 6X/DAY
     Dates: start: 20170523, end: 20170523
  138. POTASSIUM CHLORIDE. [Concomitant]
     Active Substance: POTASSIUM CHLORIDE
     Indication: PNEUMONIA
     Dosage: 20 MEQ, 2X/DAY (BID)
     Route: 042
     Dates: start: 20170715, end: 20170715
  139. CAFFEINE. [Concomitant]
     Active Substance: CAFFEINE
     Indication: UPPER RESPIRATORY TRACT INFECTION
     Dosage: 50 MG, 3X/DAY (TID)
     Route: 048
     Dates: start: 20170327, end: 20170330
  140. SODIUM CHLORIDE. [Concomitant]
     Active Substance: SODIUM CHLORIDE
     Indication: DEHYDRATION
  141. SODIUM CHLORIDE. [Concomitant]
     Active Substance: SODIUM CHLORIDE
     Indication: HYPOTENSION
     Dosage: 500 ML, 3X/DAY (TID)
     Dates: start: 20170719, end: 20170719
  142. MIDAZOLAM HCL [Concomitant]
     Active Substance: MIDAZOLAM HYDROCHLORIDE
     Dosage: 15 MG, ONCE DAILY (QD) ROUTE C IF
     Dates: start: 20170720, end: 20170727
  143. LACTATED RINGERS SOLUTION [Concomitant]
     Active Substance: CALCIUM CHLORIDE\POTASSIUM CHLORIDE\SODIUM CHLORIDE\SODIUM LACTATE
     Indication: PNEUMONIA
     Dosage: 500 ML, 2X/DAY (BID)
     Route: 042
     Dates: start: 20170715, end: 20170715
  144. TERBUTALINE SULFATE. [Concomitant]
     Active Substance: TERBUTALINE SULFATE
     Indication: PNEUMONIA
     Dosage: 1 DF, 4X/DAY (QID) ROUTE IH
     Dates: start: 20170715, end: 20170727
  145. MEROPENEM TRIHYDRATE [Concomitant]
     Active Substance: MEROPENEM
     Dosage: 700 MG, 3X/DAY (TID)
  146. CISATRACURIUM. [Concomitant]
     Active Substance: CISATRACURIUM
     Indication: CENTRAL VENOUS CATHETERISATION
     Dosage: 10 MG, ONCE DAILY (QD) ROUTE CIF
     Dates: start: 20170721, end: 20170721
  147. ZYVOX [Concomitant]
     Active Substance: LINEZOLID
     Indication: PRODUCT USED FOR UNKNOWN INDICATION
     Dosage: UNK
     Dates: start: 20170628
  148. PHENYTOIN. [Suspect]
     Active Substance: PHENYTOIN
     Dosage: 100 MG, 2X/DAY (BID)
     Route: 048
     Dates: start: 20170728
  149. ALEVIATIN [Concomitant]
     Active Substance: PHENYTOIN SODIUM
     Indication: EPILEPSY
     Dosage: 80 MG, 2X/DAY (BID), ROUTE IF
     Dates: start: 20170516, end: 20170526
  150. CLAFORAN [Concomitant]
     Active Substance: CEFOTAXIME SODIUM
     Indication: PERITONITIS
     Dosage: 1500 MG, 4X/DAY (QID)
     Route: 042
     Dates: start: 20170427, end: 20170501
  151. CLAFORAN [Concomitant]
     Active Substance: CEFOTAXIME SODIUM
     Indication: DEVICE RELATED INFECTION
     Dosage: 2000 MG, 4X/DAY (QID)
     Route: 042
     Dates: start: 20170501, end: 20170502
  152. VANCOMYCIN HCL [Concomitant]
     Active Substance: VANCOMYCIN HYDROCHLORIDE
     Indication: PERITONITIS
     Dosage: 450 MG, 4X/DAY (QID)
     Dates: start: 20170427, end: 20170429
  153. VANCOMYCIN HCL [Concomitant]
     Active Substance: VANCOMYCIN HYDROCHLORIDE
     Dosage: 1000 MG, 3X/DAY (TID)
     Dates: start: 20170917, end: 20170917
  154. ACETAMINOPHEN. [Concomitant]
     Active Substance: ACETAMINOPHEN
     Indication: ANAL ABSCESS
     Dosage: 375 MG, AS NEEDED (PRN)
     Route: 048
     Dates: start: 20170715, end: 20170817
  155. ACETAMINOPHEN. [Concomitant]
     Active Substance: ACETAMINOPHEN
     Indication: CARBUNCLE
     Dosage: 10 ML, AS NEEDED (PRN)
     Route: 048
     Dates: start: 20170822, end: 20170829
  156. ACETAMINOPHEN. [Concomitant]
     Active Substance: ACETAMINOPHEN
     Indication: PYREXIA
     Dosage: 500 MG, 3X/DAY (TID)
     Route: 048
     Dates: start: 20170915
  157. DEXTROSE. [Concomitant]
     Active Substance: DEXTROSE
     Dosage: 12.5 MG, UNK ROUTE: IF
     Dates: start: 20170516, end: 20170516
  158. MAGNESIUM OXIDE. [Concomitant]
     Active Substance: MAGNESIUM OXIDE
     Indication: ILEUS
     Dosage: 500 MG, 3X/DAY (TID)
     Route: 048
     Dates: start: 20170417, end: 20170513
  159. LACTULOSE. [Concomitant]
     Active Substance: LACTULOSE
     Indication: ILEUS
     Dosage: 15 ML, 2X/DAY (BID)
     Route: 048
     Dates: start: 20170421, end: 20170513
  160. ACETYLCYSTEINE. [Concomitant]
     Active Substance: ACETYLCYSTEINE
     Dosage: 300 MG, 3X/DAY (TID)
     Dates: start: 20170521, end: 20170523
  161. TERBUTALINE SULFATE. [Concomitant]
     Active Substance: TERBUTALINE SULFATE
     Dosage: 5 MG, 3X/DAY (TID)
     Dates: start: 20170521, end: 20170523
  162. ESOMEPRAZOLE [Concomitant]
     Active Substance: ESOMEPRAZOLE
     Indication: POSTOPERATIVE CARE
     Dosage: 20 MG, ONCE DAILY (QD)
     Route: 042
     Dates: start: 20170516, end: 20170518
  163. ESOMEPRAZOLE [Concomitant]
     Active Substance: ESOMEPRAZOLE
     Dosage: 35 MG, 2X/DAY (BID)
     Route: 042
     Dates: start: 20170720, end: 20170730
  164. POTASSIUM CHLORIDE. [Concomitant]
     Active Substance: POTASSIUM CHLORIDE
     Indication: NUTRITIONAL SUPPLEMENTATION
     Dosage: 15 MEQ, UNK
     Route: 042
     Dates: start: 20170518, end: 20170518
  165. TAZOBACTAM [Concomitant]
     Active Substance: TAZOBACTAM
     Indication: DEVICE RELATED INFECTION
     Dosage: 325 MG, 4X/DAY (QID)
     Dates: start: 20170530, end: 20170605
  166. ETHENZAMIDE [Concomitant]
     Active Substance: ETHENZAMIDE
     Indication: UPPER RESPIRATORY TRACT INFECTION
     Dosage: 300 MG, 3X/DAY (TID)
     Dates: start: 20170327, end: 20170330
  167. TAZOCIN [Concomitant]
     Active Substance: PIPERACILLIN SODIUM\TAZOBACTAM SODIUM
     Dosage: 3000 MG, 4X/DAY (QID) ROUTE IF
     Dates: start: 20170916
  168. CEFIXIME. [Concomitant]
     Active Substance: CEFIXIME
     Indication: ANAL ABSCESS
     Dosage: 100 MG, 2X/DAY (BID)
     Route: 048
     Dates: start: 20170915, end: 20170918
  169. DICLOXACILLIN SODIUM. [Concomitant]
     Active Substance: DICLOXACILLIN SODIUM
     Indication: CELLULITIS
     Dosage: 500 MG, UNK
     Route: 048
     Dates: start: 20170819, end: 20170822
  170. SODIUM BICARBONATE. [Concomitant]
     Active Substance: SODIUM BICARBONATE
     Indication: PNEUMONIA
     Dosage: 16.6 MEQ, UNK ROUTE: IF
     Dates: start: 20170715, end: 20170715
  171. ALBUMIN [Concomitant]
     Active Substance: ALBUMIN HUMAN
     Dosage: 25 G, UNK
     Dates: start: 20170720, end: 20170720
  172. TERBUTALINE SULFATE. [Concomitant]
     Active Substance: TERBUTALINE SULFATE
     Dosage: 1 DF, 2X/DAY (BID)
     Dates: start: 20170814, end: 20170815
  173. CEFTAZIDIME PENTAHYDRATE [Concomitant]
     Active Substance: CEFTAZIDIME
     Indication: PNEUMONIA
     Dosage: 1800 MG, 3X/DAY (TID)
     Route: 042
     Dates: start: 20170717, end: 20170719
  174. CEFTAZIDIME PENTAHYDRATE [Concomitant]
     Active Substance: CEFTAZIDIME
     Dosage: 1400 MG, 3X/DAY (TID)
     Route: 042
     Dates: start: 20170803, end: 20170804
  175. LORAZEPAM. [Concomitant]
     Active Substance: LORAZEPAM
     Indication: PNEUMONIA
     Dosage: 2 MG, UNK
     Route: 042
     Dates: start: 20170718, end: 20170718
  176. DIPHENHYDRAMINE HCL [Concomitant]
     Active Substance: DIPHENHYDRAMINE HYDROCHLORIDE
     Dosage: 30 MG, UNK
     Route: 042
     Dates: start: 20170720, end: 20170720
  177. HYDROCORTISONE ACETATE. [Concomitant]
     Active Substance: HYDROCORTISONE ACETATE
     Indication: PRODUCT USED FOR UNKNOWN INDICATION
  178. RINDERON V [Concomitant]
     Active Substance: BETAMETHASONE VALERATE
     Indication: PRODUCT USED FOR UNKNOWN INDICATION
     Dosage: UNK
  179. BAKTAR [Concomitant]
     Active Substance: SULFAMETHOXAZOLE\TRIMETHOPRIM
     Indication: PRODUCT USED FOR UNKNOWN INDICATION
     Dosage: UNK
  180. UNASYN [Concomitant]
     Active Substance: AMPICILLIN SODIUM\SULBACTAM SODIUM
     Indication: PNEUMONIA ASPIRATION
     Dosage: 1700 MG, 4X/DAY (QID)
     Route: 048
     Dates: start: 20171219, end: 20171219
  181. OXOLAMINE CITRATE [Concomitant]
     Active Substance: OXOLAMINE CITRATE
     Indication: UPPER RESPIRATORY TRACT INFECTION
     Dosage: 100 MG, 3X/DAY (TID)
     Dates: start: 20180109, end: 20180116
  182. PHENYTOIN. [Suspect]
     Active Substance: PHENYTOIN
     Dosage: 100 MG, 2X/DAY (BID)
     Route: 048
     Dates: start: 20170526, end: 20170720
  183. LEVETIRACETAM. [Concomitant]
     Active Substance: LEVETIRACETAM
     Indication: EPILEPSY
     Dosage: 960 MG, 2X/DAY (BID), ROUTE IF
     Dates: start: 20170516, end: 20170526
  184. SULBACTAM [Concomitant]
     Active Substance: SULBACTAM
     Indication: PERITONITIS
     Dosage: 500 MG, 4X/DAY (QID)
     Route: 042
     Dates: start: 20170414, end: 20170427
  185. FENTANYL CITRATE. [Concomitant]
     Active Substance: FENTANYL CITRATE
     Indication: PERITONITIS
     Dosage: 0.1 MG, UNK
     Route: 042
     Dates: start: 20170426, end: 20170426
  186. DEXTROSE AND SODIUM CHLORIDE [Concomitant]
     Active Substance: DEXTROSE MONOHYDRATE\SODIUM CHLORIDE
     Dosage: 2400 ML, ONCE DAILY (QD)
     Dates: start: 20170715, end: 20170716
  187. DEXTROSE. [Concomitant]
     Active Substance: DEXTROSE
     Indication: DEHYDRATION
     Dosage: ROUTE IF325 ML, ONCE DAILY (QD)
     Dates: start: 20170415, end: 20170415
  188. BISACODYL. [Concomitant]
     Active Substance: BISACODYL
     Dosage: 5 MG, ONCE DAILY (QD)
     Route: 048
     Dates: start: 20170414, end: 20170417
  189. BISACODYL. [Concomitant]
     Active Substance: BISACODYL
     Dosage: 5 MG, ONCE DAILY (QD)
     Route: 048
     Dates: start: 20170419, end: 20170421
  190. CHLORAL HYDRATE [Concomitant]
     Active Substance: CHLORAL HYDRATE
     Dosage: 1600 MG, UNK
     Route: 048
     Dates: start: 20170516, end: 20170516
  191. POVIDONE-IODINE. [Concomitant]
     Active Substance: POVIDONE-IODINE
     Indication: WOUND
     Dosage: UNK
     Dates: start: 20170503
  192. ZINC OXIDE. [Concomitant]
     Active Substance: ZINC OXIDE
     Indication: ANAL ABSCESS
     Dosage: UNK, AS NEEDED (PRN)
     Dates: start: 20170717, end: 20170817
  193. FUCIDIN [Concomitant]
     Active Substance: FUSIDIC ACID
     Indication: SKIN LESION
     Dosage: UNK, 2X/DAY (BID)
     Dates: start: 20170718, end: 20170719
  194. LIDOCAINE HYDROCHLORIDE. [Concomitant]
     Active Substance: LIDOCAINE HYDROCHLORIDE
     Indication: WOUND
     Dosage: UNK
     Dates: start: 20170511, end: 20170517
  195. MENTHOL. [Concomitant]
     Active Substance: MENTHOL
     Indication: WOUND
     Dosage: UNK
     Dates: start: 20170511, end: 20170517
  196. EPINEPHRINE HYDROCHLORIDE. [Concomitant]
     Active Substance: EPINEPHRINE HYDROCHLORIDE
     Indication: POSTOPERATIVE CARE
     Dosage: 0.2 MG, 6X/DAY
     Dates: start: 20170517, end: 20170517
  197. SODIUM CHLORIDE. [Concomitant]
     Active Substance: SODIUM CHLORIDE
     Indication: HYPERNATRAEMIA
     Dosage: 2.25 MG, ONCE DAILY (QD)
     Dates: start: 20170413, end: 20170414
  198. TAZOCIN [Concomitant]
     Active Substance: PIPERACILLIN SODIUM\TAZOBACTAM SODIUM
     Indication: CELLULITIS
     Dosage: UNK
  199. ATROPINE SULPHATE [Concomitant]
     Active Substance: ATROPINE SULFATE
     Indication: PNEUMONIA
     Dosage: 0.7 MG, ONCE DAILY (QD)
     Route: 042
     Dates: start: 20170731, end: 20170731
  200. METOCLOPRAMIDE HCL [Concomitant]
     Active Substance: METOCLOPRAMIDE HYDROCHLORIDE
     Indication: PNEUMONIA
     Dosage: 7 ML, 3X/DAY (TID)
     Route: 048
     Dates: start: 20170809, end: 20170812
  201. ALBUMIN [Concomitant]
     Active Substance: ALBUMIN HUMAN
     Indication: HYPOALBUMINAEMIA
     Dosage: 25 G, UNK
     Dates: start: 20170715, end: 20170715
  202. TERBUTALINE SULFATE. [Concomitant]
     Active Substance: TERBUTALINE SULFATE
     Dosage: 1 DF, 4X/DAY (QID)
     Dates: start: 20170728, end: 20170814
  203. MEROPENEM TRIHYDRATE [Concomitant]
     Active Substance: MEROPENEM
     Indication: SERRATIA BACTERAEMIA
     Dosage: 1000 MG, 3X/DAY (TID) ROUTE: IF
     Dates: start: 20170719, end: 20170720
  204. DIPHENHYDRAMINE HCL [Concomitant]
     Active Substance: DIPHENHYDRAMINE HYDROCHLORIDE
     Indication: PRODUCT USED FOR UNKNOWN INDICATION
     Dosage: 30 MG, UNK
     Route: 042
     Dates: start: 20170716, end: 20170716

REACTIONS (36)
  - Serratia bacteraemia [Recovered/Resolved]
  - Rash [Recovered/Resolved]
  - Furuncle [Recovered/Resolved]
  - Dyspepsia [Recovered/Resolved]
  - Upper gastrointestinal haemorrhage [Recovered/Resolved]
  - Pneumonia aspiration [Recovered/Resolved]
  - Renal failure [Recovered/Resolved]
  - Constipation [Recovered/Resolved]
  - Shock [Recovered/Resolved]
  - Dermatitis diaper [Recovered/Resolved]
  - Erythema [Recovered/Resolved]
  - Anal abscess [Recovered/Resolved]
  - Peptic ulcer [Recovered/Resolved]
  - Hypernatraemia [Recovered/Resolved]
  - Cellulitis [Recovered/Resolved]
  - Conjunctivitis [Recovered/Resolved]
  - Peritonitis [Recovered/Resolved]
  - Dehydration [Recovered/Resolved]
  - Ileus [Recovered/Resolved]
  - Fungaemia [Recovered/Resolved]
  - Anal erosion [Recovered/Resolved]
  - Suspected product contamination [Recovered/Resolved]
  - Bacteraemia [Recovered/Resolved]
  - Abdominal wall cyst [Not Recovered/Not Resolved]
  - Encephalomalacia [Recovered/Resolved]
  - Anal polyp [Recovered/Resolved]
  - Device related infection [Recovered/Resolved]
  - Pneumonia streptococcal [Recovered/Resolved]
  - Pyrexia [Recovered/Resolved]
  - Respiratory failure [Recovered/Resolved]
  - Septic shock [Recovered/Resolved]
  - Hydrocephalus [Recovered/Resolved]
  - Upper respiratory tract infection [Recovered/Resolved]
  - Carbuncle [Recovered/Resolved]
  - Altered state of consciousness [Recovered/Resolved]
  - Loss of consciousness [Unknown]

NARRATIVE: CASE EVENT DATE: 2017
